FAERS Safety Report 19252707 (Version 1)
Quarter: 2021Q2

REPORT INFORMATION
  Report Type: Spontaneous
  Country: US (occurrence: US)
  Receive Date: 20210513
  Receipt Date: 20210513
  Transmission Date: 20210717
  Serious: No
  Sender: FDA-Public Use
  Company Number: US-SA-2021SA157243

PATIENT
  Sex: Male

DRUGS (5)
  1. POTASSIUM [Concomitant]
     Active Substance: POTASSIUM
  2. VITAMINS NOS [Concomitant]
     Active Substance: VITAMINS
  3. DUPIXENT [Suspect]
     Active Substance: DUPILUMAB
     Indication: DERMATITIS ATOPIC
     Dosage: 300 MG/2ML, QOW
     Route: 058
  4. AMLODIPINE BESYLATE. [Concomitant]
     Active Substance: AMLODIPINE BESYLATE
  5. SERTRALINE HCL [Concomitant]
     Active Substance: SERTRALINE HYDROCHLORIDE

REACTIONS (2)
  - Pruritus [Unknown]
  - Dry skin [Unknown]
